FAERS Safety Report 17977606 (Version 1)
Quarter: 2020Q3

REPORT INFORMATION
  Report Type: Spontaneous
  Country: US (occurrence: US)
  Receive Date: 20200703
  Receipt Date: 20200703
  Transmission Date: 20201103
  Serious: No
  Sender: FDA-Public Use
  Company Number: US-TEVA-2020-US-1794807

PATIENT
  Sex: Female
  Weight: 68.04 kg

DRUGS (1)
  1. VANDAZOLE [Suspect]
     Active Substance: METRONIDAZOLE
     Indication: BACTERIAL INFECTION
     Dosage: FORM STRENGTH: 0.75
     Route: 065

REACTIONS (1)
  - Drug ineffective [Unknown]
